FAERS Safety Report 11938403 (Version 1)
Quarter: 2016Q1

REPORT INFORMATION
  Report Type: Spontaneous
  Country: US (occurrence: None)
  Receive Date: 20160121
  Receipt Date: 20160121
  Transmission Date: 20160526
  Serious: Yes (Other)
  Sender: FDA-Public Use
  Company Number: None

PATIENT
  Age: 74 Year
  Sex: Female
  Weight: 47.63 kg

DRUGS (7)
  1. SENIOUR MULTIVITAMIN/MULTIMINERAL [Concomitant]
  2. ARTIFICIAL TEARS [Concomitant]
     Active Substance: GLYCERIN\HYPROMELLOSES\POLYETHYLENE GLYCOL 400
  3. ACETAMINOPHEN. [Concomitant]
     Active Substance: ACETAMINOPHEN
  4. STERIOLE NASAL SALINE SPRAY [Concomitant]
  5. ENALAPRIL-HCTZ 10-25 OCEANSIDE [Suspect]
     Active Substance: ENALAPRIL\HYDROCHLOROTHIAZIDE
     Indication: HYPERTENSION
     Route: 048
     Dates: start: 20151022, end: 20160104
  6. SLOW RELEASE CALCIUM/VIT D [Concomitant]
  7. ASPIRIN. [Concomitant]
     Active Substance: ASPIRIN

REACTIONS (5)
  - Alopecia [None]
  - Rash [None]
  - Tinnitus [None]
  - Dry skin [None]
  - Dry mouth [None]

NARRATIVE: CASE EVENT DATE: 20151022
